FAERS Safety Report 5995962-5 (Version None)
Quarter: 2008Q4

REPORT INFORMATION
  Report Type: 
  Country: None (occurrence: None)
  Receive Date: 20081212
  Receipt Date: 20081205
  Transmission Date: 20090506
  Serious: Yes (Other)
  Sender: FDA-Public Use
  Company Number: ES-ABBOTT-08P-144-0491119-00

PATIENT
  Age: 45 Year
  Sex: Female

DRUGS (6)
  1. RITONAVIR [Suspect]
     Indication: ANTIRETROVIRAL THERAPY
  2. ATAZANAVIR SULFATE [Interacting]
     Indication: ANTIRETROVIRAL THERAPY
  3. SAQUINAVIR [Interacting]
     Indication: ANTIRETROVIRAL THERAPY
  4. CAT'S CLAW HERBAL REMEDY [Interacting]
     Indication: DRUG USE FOR UNKNOWN INDICATION
     Dosage: NOT REPORTED
  5. ABACAVIR [Concomitant]
     Indication: ANTIRETROVIRAL THERAPY
  6. LAMIVUDINE [Concomitant]
     Indication: ANTIRETROVIRAL THERAPY

REACTIONS (2)
  - DRUG INTERACTION [None]
  - DRUG LEVEL INCREASED [None]
